FAERS Safety Report 24178882 (Version 1)
Quarter: 2024Q3

REPORT INFORMATION
  Report Type: Spontaneous
  Country: DE (occurrence: DE)
  Receive Date: 20240806
  Receipt Date: 20240806
  Transmission Date: 20241016
  Serious: Yes (Hospitalization, Other)
  Sender: RANBAXY
  Company Number: DE-SUN PHARMACEUTICAL INDUSTRIES LTD-2024R1-460672

PATIENT
  Age: 50 Year
  Sex: Male

DRUGS (6)
  1. CALCITRIOL [Suspect]
     Active Substance: CALCITRIOL
     Indication: Acute generalised exanthematous pustulosis
     Dosage: UNK
     Route: 065
  2. DEXAMETHASONE [Suspect]
     Active Substance: DEXAMETHASONE
     Indication: Acute generalised exanthematous pustulosis
     Dosage: 4 MILLIGRAM, TID
     Route: 065
  3. DEXAMETHASONE [Suspect]
     Active Substance: DEXAMETHASONE
     Dosage: 2 MILLIGRAM, TID
     Route: 065
  4. DEXAMETHASONE [Suspect]
     Active Substance: DEXAMETHASONE
     Dosage: 1 MILLIGRAM, EVERY 3 DAYS
     Route: 065
  5. PREDNISOLONE [Suspect]
     Active Substance: PREDNISOLONE
     Indication: Acute generalised exanthematous pustulosis
     Dosage: 100 MILLIGRAM, DAILY, AT DAY 1
     Route: 048
  6. PREDNISOLONE [Suspect]
     Active Substance: PREDNISOLONE
     Dosage: 50 MILLIGRAM, DAILY, AT DAY 2
     Route: 048

REACTIONS (2)
  - Condition aggravated [Unknown]
  - Disease recurrence [Unknown]
